FAERS Safety Report 15440910 (Version 1)
Quarter: 2018Q3

REPORT INFORMATION
  Report Type: Spontaneous
  Country: US (occurrence: US)
  Receive Date: 20180925
  Receipt Date: 20180925
  Transmission Date: 20181010
  Serious: No
  Sender: FDA-Public Use
  Company Number: None

PATIENT
  Age: 64 Year
  Sex: Female

DRUGS (4)
  1. VERZENIO [Suspect]
     Active Substance: ABEMACICLIB
     Dates: start: 20180911
  2. WARFARIN [Concomitant]
     Active Substance: WARFARIN
  3. XGEVA [Concomitant]
     Active Substance: DENOSUMAB
  4. FASLODEX [Concomitant]
     Active Substance: FULVESTRANT

REACTIONS (1)
  - Dysuria [None]

NARRATIVE: CASE EVENT DATE: 20180924
